FAERS Safety Report 18463491 (Version 3)
Quarter: 2020Q4

REPORT INFORMATION
  Report Type: Report from Study
  Country: BR (occurrence: BR)
  Receive Date: 20201104
  Receipt Date: 20201202
  Transmission Date: 20210114
  Serious: Yes (Death, Hospitalization, Disabling)
  Sender: FDA-Public Use
  Company Number: BR-ROCHE-2705645

PATIENT
  Age: 61 Year
  Sex: Male
  Weight: 70 kg

DRUGS (9)
  1. DEXAMETHASONE. [Concomitant]
     Active Substance: DEXAMETHASONE
     Indication: OEDEMA
     Dosage: 2.5ML, 4 AMPOULES
     Route: 042
     Dates: start: 20201017
  2. TENECTEPLASE [Suspect]
     Active Substance: TENECTEPLASE
     Indication: MYOCARDIAL INFARCTION
     Dosage: 50% OF DOSAGE LISTED ON LOCAL LEAFLET?AMPOULE; AT 9:25 AM
     Route: 042
     Dates: start: 20201017, end: 20201017
  3. CLOPIDOGREL [Suspect]
     Active Substance: CLOPIDOGREL BISULFATE
     Indication: ACUTE MYOCARDIAL INFARCTION
     Route: 065
     Dates: start: 20201017
  4. ENOXAPARIN [Concomitant]
     Active Substance: ENOXAPARIN
     Indication: MYOCARDIAL INFARCTION
     Route: 058
     Dates: start: 20201017, end: 20201017
  5. HEPARIN [Concomitant]
     Active Substance: HEPARIN SODIUM
     Indication: PRODUCT USED FOR UNKNOWN INDICATION
     Route: 065
  6. ENOXAPARIN [Concomitant]
     Active Substance: ENOXAPARIN
     Route: 042
     Dates: start: 20201017, end: 20201017
  7. AMIODARONE [Concomitant]
     Active Substance: AMIODARONE
     Indication: ARRHYTHMIA
     Dosage: 3ML, 2 AMPOULES
     Route: 042
     Dates: start: 20201017
  8. DOBUTAMINE [Concomitant]
     Active Substance: DOBUTAMINE HYDROCHLORIDE
     Indication: CARDIAC DISORDER
     Dosage: 4 AMPOULES
     Route: 042
     Dates: start: 20201017
  9. NORADRENALINE [Concomitant]
     Active Substance: NOREPINEPHRINE
     Indication: HYPOTENSION
     Dosage: 4 AMPOULES
     Route: 042
     Dates: start: 20201017

REACTIONS (4)
  - Brain death [Fatal]
  - Depressed level of consciousness [Unknown]
  - Haemorrhage intracranial [Fatal]
  - Central nervous system haemorrhage [Fatal]

NARRATIVE: CASE EVENT DATE: 20201017
